APPROVED DRUG PRODUCT: MEPROBAMATE
Active Ingredient: MEPROBAMATE
Strength: 200MG
Dosage Form/Route: TABLET;ORAL
Application: A040797 | Product #001 | TE Code: AA
Applicant: INVAGEN PHARMACEUTICALS INC
Approved: Feb 27, 2008 | RLD: No | RS: No | Type: RX